FAERS Safety Report 16404048 (Version 3)
Quarter: 2025Q3

REPORT INFORMATION
  Report Type: Spontaneous
  Country: EU (occurrence: EU)
  Receive Date: 20190607
  Receipt Date: 20250723
  Transmission Date: 20251021
  Serious: Yes (Other)
  Sender: AUROBINDO
  Company Number: EU-AUROBINDO-AUR-APL-2019-031589

PATIENT
  Age: 40 Year
  Sex: Female

DRUGS (6)
  1. TENOFOVIR DISOPROXIL [Interacting]
     Active Substance: TENOFOVIR DISOPROXIL
     Indication: HIV infection
     Route: 065
  2. ATAZANAVIR SULFATE [Interacting]
     Active Substance: ATAZANAVIR SULFATE
     Indication: HIV infection
     Route: 065
  3. EMTRICITABINE [Interacting]
     Active Substance: EMTRICITABINE
     Indication: HIV infection
     Route: 065
  4. RITONAVIR [Interacting]
     Active Substance: RITONAVIR
     Indication: HIV infection
     Route: 065
  5. HERBALS [Interacting]
     Active Substance: HERBALS
     Indication: HIV infection
     Dosage: 900 MILLIGRAM, ONCE A DAY (450 MILLIGRAM TWO TIMES A DAY)
     Route: 065
  6. HERBALS [Interacting]
     Active Substance: HERBALS
     Indication: Obesity

REACTIONS (2)
  - Virologic failure [Recovered/Resolved]
  - Drug interaction [Unknown]
